FAERS Safety Report 15950008 (Version 3)
Quarter: 2019Q1

REPORT INFORMATION
  Report Type: Spontaneous
  Country: LT (occurrence: LT)
  Receive Date: 20190211
  Receipt Date: 20190316
  Transmission Date: 20190417
  Serious: Yes (Life-Threatening, Hospitalization, Other)
  Sender: FDA-Public Use
  Company Number: PHHY2019LT031860

PATIENT
  Age: 52 Year
  Sex: Male

DRUGS (5)
  1. ATORVASTATIN [Suspect]
     Active Substance: ATORVASTATIN
     Indication: HYPERCHOLESTEROLAEMIA
  2. ASPIRIN. [Concomitant]
     Active Substance: ASPIRIN
     Indication: PRODUCT USED FOR UNKNOWN INDICATION
     Route: 065
  3. ATORVASTATIN [Suspect]
     Active Substance: ATORVASTATIN
     Indication: BLOOD CHOLESTEROL INCREASED
     Dosage: 40 MG, UNK
     Route: 065
  4. RAMIPRIL. [Concomitant]
     Active Substance: RAMIPRIL
     Indication: MYOCARDIAL INFARCTION
     Dosage: 10 MG, UNK
     Route: 065
  5. TICAGRELOR. [Concomitant]
     Active Substance: TICAGRELOR
     Indication: MYOCARDIAL INFARCTION
     Dosage: UNK
     Route: 065

REACTIONS (10)
  - Chest discomfort [Unknown]
  - Drug ineffective [Unknown]
  - Loss of consciousness [Unknown]
  - Feeling abnormal [Unknown]
  - Acute myocardial infarction [Unknown]
  - Ventricular fibrillation [Unknown]
  - Pulse absent [Unknown]
  - Respiratory arrest [Unknown]
  - Dizziness [Unknown]
  - Cold sweat [Unknown]
